FAERS Safety Report 8304153-4 (Version None)
Quarter: 2012Q2

REPORT INFORMATION
  Report Type: 
  Country: None (occurrence: None)
  Receive Date: 20120423
  Receipt Date: 20120416
  Transmission Date: 20120825
  Serious: Yes (Hospitalization)
  Sender: FDA-Public Use
  Company Number: US-JNJFOC-20120302663

PATIENT
  Sex: Male
  Weight: 74.84 kg

DRUGS (4)
  1. STELARA [Suspect]
     Indication: PSORIASIS
     Dosage: CYCLE 1
     Route: 058
     Dates: start: 20111208, end: 20111208
  2. TACLONEX [Concomitant]
     Indication: PSORIASIS
     Route: 065
  3. STELARA [Suspect]
     Dosage: CYCLE 2
     Route: 058
     Dates: start: 20120109, end: 20120109
  4. ALL OTHER THERAPEUTIC PRODUCTS [Concomitant]
     Indication: PREMEDICATION
     Route: 065

REACTIONS (4)
  - SERUM SICKNESS [None]
  - HAEMATURIA [None]
  - PLATELET COUNT DECREASED [None]
  - ABDOMINAL PAIN [None]
